FAERS Safety Report 6425960-9 (Version None)
Quarter: 2009Q4

REPORT INFORMATION
  Report Type: 
  Country: None (occurrence: None)
  Receive Date: 20091103
  Receipt Date: 20091103
  Transmission Date: 20100525
  Serious: Yes (Life-Threatening, Hospitalization)
  Sender: FDA-Public Use
  Company Number: None

PATIENT

DRUGS (1)
  1. VANCOMYCIN [Suspect]
     Indication: SEPSIS
     Dosage: 1500 MG ONCE IV
     Route: 042
     Dates: start: 20090505, end: 20090505

REACTIONS (7)
  - ANGIOEDEMA [None]
  - HYPERTENSION [None]
  - PYREXIA [None]
  - RESPIRATORY DISTRESS [None]
  - STRIDOR [None]
  - TACHYCARDIA [None]
  - TACHYPNOEA [None]
